FAERS Safety Report 9521477 (Version 1)
Quarter: 2013Q3

REPORT INFORMATION
  Report Type: Spontaneous
  Country: US (occurrence: None)
  Receive Date: 20130911
  Receipt Date: 20130911
  Transmission Date: 20140515
  Serious: Yes (Other)
  Sender: FDA-Public Use
  Company Number: 001596027A

PATIENT
  Age: 23 Year
  Sex: Female

DRUGS (5)
  1. PROACTIV SOLUTION RENEWING CLEANSER [Suspect]
     Indication: ACNE
     Dosage: ONCE DERMAL
     Dates: start: 20130508
  2. PROACTIV SOLUTION REPAIRING TREATMENT [Suspect]
     Indication: ACNE
     Dosage: ONCE DERMAL
     Dates: start: 20130508
  3. PROACTIV SOLUTION DEEP CLEANSING WASH [Suspect]
     Indication: ACNE
     Dosage: ONCE DERMAL
     Dates: start: 20130508
  4. PROACTIV SOLUTION ADVANCED BLEMISH TREATMENT [Suspect]
     Dosage: ONCE DERMAL
     Dates: start: 20130508
  5. PROACTIV SOLUTION ADVANCED BLEMISH TREATMENT [Suspect]
     Indication: ACNE
     Dosage: ONCE DERMAL
     Dates: start: 20130508

REACTIONS (5)
  - Application site reaction [None]
  - Erythema [None]
  - Application site paraesthesia [None]
  - Burning sensation [None]
  - Swelling face [None]
